FAERS Safety Report 6466155-2 (Version None)
Quarter: 2009Q4

REPORT INFORMATION
  Report Type: 
  Country: None (occurrence: None)
  Receive Date: 20091202
  Receipt Date: 20091124
  Transmission Date: 20100525
  Serious: Yes (Disabling, Other)
  Sender: FDA-Public Use
  Company Number: AU-TYCO HEALTHCARE/MALLINCKRODT-T200902228

PATIENT
  Age: 49 Year
  Sex: Male

DRUGS (4)
  1. SODIUM IODIDE I 131 [Suspect]
     Indication: GOITRE
     Dosage: DIAGNOSITC
     Dates: start: 19670101, end: 19670101
  2. SODIUM IODIDE I 131 [Suspect]
     Dosage: DIAGNOSTIC
     Dates: start: 19700601, end: 19700601
  3. SODIUM IODIDE I 131 [Suspect]
     Dosage: DIAGNOSITC
     Dates: start: 19700709, end: 19700709
  4. SODIUM IODIDE I 131 [Suspect]
     Dosage: 5 MCI, SINGLE (THERAPEUTIC)
     Dates: start: 19700710, end: 19700710

REACTIONS (1)
  - VOCAL CORD PARESIS [None]
